FAERS Safety Report 6563013-X (Version None)
Quarter: 2010Q1

REPORT INFORMATION
  Report Type: 
  Country: None (occurrence: None)
  Receive Date: 20100130
  Receipt Date: 20091214
  Transmission Date: 20100710
  Serious: No
  Sender: FDA-Public Use
  Company Number: US-ABBOTT-09P-163-0611804-00

PATIENT
  Sex: Female
  Weight: 62.652 kg

DRUGS (2)
  1. HUMIRA [Suspect]
     Indication: DRUG USE FOR UNKNOWN INDICATION
     Dates: start: 20070101
  2. HUMIRA [Suspect]
     Dosage: SWITCHED TO PEN

REACTIONS (2)
  - H1N1 INFLUENZA [None]
  - PNEUMONIA [None]
